FAERS Safety Report 20178278 (Version 2)
Quarter: 2021Q4

REPORT INFORMATION
  Report Type: Report from Study
  Country: US (occurrence: US)
  Receive Date: 20211213
  Receipt Date: 20211216
  Transmission Date: 20220304
  Serious: Yes (Life-Threatening, Hospitalization, Other)
  Sender: FDA-Public Use
  Company Number: US-ABBVIE-21K-163-4082443-00

PATIENT
  Age: 65 Year
  Sex: Male
  Weight: 127.12 kg

DRUGS (36)
  1. HUMIRA [Suspect]
     Active Substance: ADALIMUMAB
     Indication: Product used for unknown indication
     Route: 058
     Dates: start: 2016, end: 20210813
  2. HUMIRA [Suspect]
     Active Substance: ADALIMUMAB
     Route: 058
     Dates: start: 202109
  3. MODERNA COVID-19 VACCINE [Concomitant]
     Active Substance: ELASOMERAN
     Indication: COVID-19 immunisation
     Route: 030
     Dates: start: 202101, end: 202101
  4. MODERNA COVID-19 VACCINE [Concomitant]
     Active Substance: ELASOMERAN
     Route: 030
     Dates: start: 202102, end: 202102
  5. MONTELUKAST SODIUM [Concomitant]
     Active Substance: MONTELUKAST SODIUM
     Indication: Asthma
     Dosage: 1 TABLET AT BEDTIME
  6. AMLODIPINE BESYLATE [Concomitant]
     Active Substance: AMLODIPINE BESYLATE
     Indication: Hypertension
     Dosage: 1 TABLET IN MORNING/ 1 TABLET AT BEDTIME
  7. CLONIDINE HYDROCHLORIDE [Concomitant]
     Active Substance: CLONIDINE HYDROCHLORIDE
     Indication: Hypertension
     Dosage: 1 TABLET AT NIGHT/1 TABLET IN MORNING
  8. PRAVASTATIN [Concomitant]
     Active Substance: PRAVASTATIN
     Indication: Blood cholesterol increased
     Dosage: 1 TAB EVERY NIGHT
  9. METHOCARBAMOL [Concomitant]
     Active Substance: METHOCARBAMOL
     Indication: Muscle relaxant therapy
     Dosage: 1 TABLET 3 TIMES A DAY
  10. GABAPENTIN [Concomitant]
     Active Substance: GABAPENTIN
     Indication: Neuropathy peripheral
     Dosage: 3 1-CAP TIMES A DAY
  11. LEVOTHYROXINE [Concomitant]
     Active Substance: LEVOTHYROXINE
     Indication: Hypothyroidism
     Dosage: 88MCG 1 TAB ONCE PER DAY
  12. LORAZEPAM [Concomitant]
     Active Substance: LORAZEPAM
     Indication: Product used for unknown indication
     Dosage: 1OR 2 TAB THREE TIMES A DAY AS NEEDED
  13. MECLIZINE [Concomitant]
     Active Substance: MECLIZINE HYDROCHLORIDE
     Indication: Product used for unknown indication
     Dosage: 1-2 TAB 4- TIMES PER DAY AS NEEDED
  14. DEXILANT [Concomitant]
     Active Substance: DEXLANSOPRAZOLE
     Indication: Gastrooesophageal reflux disease
     Dosage: 1 CAP ONCE DAILY
  15. DOXAZOSIN [Concomitant]
     Active Substance: DOXAZOSIN MESYLATE
     Indication: Hypertension
     Dosage: 1 TAB EACH MORNING/AT BEDTIME
  16. TEMAZEPAM [Concomitant]
     Active Substance: TEMAZEPAM
     Indication: Product used for unknown indication
     Dosage: 1 TAB AT BEDTIME AS NEEDED
  17. ACETAMINOPHEN [Concomitant]
     Active Substance: ACETAMINOPHEN
     Indication: Pain
     Dosage: 1 TAB EVERY 8 HRS AS NEEDED
  18. SYMBICORT [Concomitant]
     Active Substance: BUDESONIDE\FORMOTEROL FUMARATE DIHYDRATE
     Indication: Asthma
     Dosage: 160/4.5 2 PUFF TWICE A DAY
  19. SYMBICORT [Concomitant]
     Active Substance: BUDESONIDE\FORMOTEROL FUMARATE DIHYDRATE
     Indication: Sarcoidosis
  20. ALBUTEROL [Concomitant]
     Active Substance: ALBUTEROL
     Indication: Asthma
     Dosage: 27GM 2 PUFFS AS NEEDED
  21. ALBUTEROL [Concomitant]
     Active Substance: ALBUTEROL
     Indication: Sarcoidosis
  22. VITAMIN D3 [Concomitant]
     Active Substance: CHOLECALCIFEROL
     Indication: Product used for unknown indication
     Dosage: 2000U 2 DAILY
  23. ZYRTEC [Concomitant]
     Active Substance: CETIRIZINE HYDROCHLORIDE
     Indication: Product used for unknown indication
  24. MUCINEX [Concomitant]
     Active Substance: GUAIFENESIN
     Indication: Product used for unknown indication
     Dosage: 1 TAB EVERY MORNING/NIGHT
  25. PREDNISONE [Concomitant]
     Active Substance: PREDNISONE
     Indication: Sarcoidosis
     Dosage: DAILY
  26. ALBUTEROL SULFATE [Concomitant]
     Active Substance: ALBUTEROL SULFATE
     Indication: Product used for unknown indication
     Dosage: MG/3ML SOLN
  27. LUMIGAN [Concomitant]
     Active Substance: BIMATOPROST
     Indication: Ocular sarcoidosis
     Dosage: 0.01% 1 INTO BOTH EYES IN THE EVENING
  28. LUMIGAN [Concomitant]
     Active Substance: BIMATOPROST
     Indication: Ocular sarcoidosis
  29. BUDESONIDE [Concomitant]
     Active Substance: BUDESONIDE
     Indication: Product used for unknown indication
     Dosage: MG/2 ML SUSP IN RINSE EACH MORNING
  30. XHANCE [Concomitant]
     Active Substance: FLUTICASONE PROPIONATE
     Indication: Rhinorrhoea
  31. XHANCE [Concomitant]
     Active Substance: FLUTICASONE PROPIONATE
     Indication: Cough
  32. HYDROCODONE [Concomitant]
     Active Substance: HYDROCODONE
     Indication: Product used for unknown indication
     Dosage: 10-325MG 1 EVERY 6 HOURS AS NEEDED
  33. FUROSEMIDE [Concomitant]
     Active Substance: FUROSEMIDE
     Indication: Fluid retention
     Dosage: 2 TAB IN AM
  34. ELIQUIS [Concomitant]
     Active Substance: APIXABAN
     Indication: Product used for unknown indication
     Dosage: 2 TAB TWICE A DAY
  35. SINEX [Concomitant]
     Active Substance: ACETAMINOPHEN\DOXYLAMINE SUCCINATE\PHENYLEPHRINE HYDROCHLORIDE
     Indication: Rhinorrhoea
     Dosage: 2 TAB IN AM
  36. FIBER [Concomitant]
     Active Substance: PSYLLIUM HUSK
     Indication: Supplementation therapy
     Dosage: 2 TAB IN AM

REACTIONS (7)
  - Pulmonary thrombosis [Recovering/Resolving]
  - Acute respiratory failure [Recovering/Resolving]
  - Thrombosis [Recovered/Resolved]
  - COVID-19 [Recovered/Resolved]
  - Thrombosis [Not Recovered/Not Resolved]
  - Parosmia [Not Recovered/Not Resolved]
  - Taste disorder [Not Recovered/Not Resolved]

NARRATIVE: CASE EVENT DATE: 20210801
